FAERS Safety Report 8298603-X (Version None)
Quarter: 2012Q1

REPORT INFORMATION
  Report Type: 
  Country: None (occurrence: None)
  Receive Date: 20120323
  Receipt Date: 20090824
  Transmission Date: 20120608
  Serious: Yes (Death)
  Sender: FDA-Public Use
  Company Number: PHEH2009US09605

PATIENT
  Age: 91 Year
  Sex: Male
  Weight: 45.4 kg

DRUGS (22)
  1. BACTRIM DS [Concomitant]
  2. ASPIRIN ^BAYER^ (ACETYLCALICYLIC ACID) [Concomitant]
  3. WELLBUTRIN [Concomitant]
  4. AMBIEN [Concomitant]
  5. PLAVIX [Concomitant]
  6. PREDNISONE TAB [Concomitant]
  7. SPIRIVA [Concomitant]
  8. TOBI [Suspect]
     Indication: BRONCHIECTASIS
     Dosage: 300 MG EVERY 14 DAYS, INHALATION
     Route: 055
     Dates: start: 20080922, end: 20090101
  9. OXYGEN (OXYGEN) [Concomitant]
  10. LIPITOR [Concomitant]
  11. LOPERAMIDE [Concomitant]
  12. LORAZEPAM [Concomitant]
  13. AVODART [Concomitant]
  14. PANTOPRAZOLE SODIUM [Concomitant]
  15. XOPENEX [Concomitant]
  16. ANTIBIOTICS (NO INGREDIENTS.SUBSTANCES) [Concomitant]
  17. OXANDRIN [Concomitant]
  18. PULMOZYME [Concomitant]
  19. MORPHINE [Concomitant]
  20. ALPRAZOLAM [Concomitant]
  21. CALAN [Concomitant]
  22. PULMICORT [Concomitant]

REACTIONS (7)
  - DECREASED APPETITE [None]
  - COUGH [None]
  - BLOOD PRESSURE SYSTOLIC INCREASED [None]
  - WEIGHT DECREASED [None]
  - BRONCHIECTASIS [None]
  - DISEASE PROGRESSION [None]
  - CHRONIC OBSTRUCTIVE PULMONARY DISEASE [None]
